FAERS Safety Report 15950597 (Version 5)
Quarter: 2020Q1

REPORT INFORMATION
  Report Type: Spontaneous
  Country: IL (occurrence: IL)
  Receive Date: 20190211
  Receipt Date: 20200316
  Transmission Date: 20200409
  Serious: Yes (Hospitalization, Other)
  Sender: FDA-Public Use
  Company Number: IL-PFIZER INC-2019057076

PATIENT
  Age: 6 Decade
  Sex: Male

DRUGS (3)
  1. ELELYSO [Suspect]
     Active Substance: TALIGLUCERASE ALFA
     Dosage: 1500 UNITS TWICE A MONTH
     Route: 042
  2. ELELYSO [Suspect]
     Active Substance: TALIGLUCERASE ALFA
     Dosage: 1500 UNITS TWICE A MONTH
     Route: 042
  3. ELELYSO [Suspect]
     Active Substance: TALIGLUCERASE ALFA
     Dosage: 1500 UNITS TWICE A MONTH
     Route: 042

REACTIONS (5)
  - Visual impairment [Unknown]
  - Incorrect dose administered [Unknown]
  - Retinal detachment [Unknown]
  - Paraesthesia oral [Recovered/Resolved]
  - Product dispensing error [Unknown]
